FAERS Safety Report 6875826-5 (Version None)
Quarter: 2010Q3

REPORT INFORMATION
  Report Type: 
  Country: None (occurrence: None)
  Receive Date: 20100727
  Receipt Date: 20070917
  Transmission Date: 20110219
  Serious: Yes (Hospitalization, Other)
  Sender: FDA-Public Use
  Company Number: US-PFIZER INC-2006105632

PATIENT
  Sex: Female
  Weight: 68 kg

DRUGS (7)
  1. CELEBREX [Suspect]
     Dates: start: 20041101
  2. VIOXX [Suspect]
     Indication: ARTHRALGIA
     Dates: start: 20000924, end: 20041113
  3. VIOXX [Suspect]
     Indication: MYALGIA
  4. VIOXX [Suspect]
     Indication: FIBROMYALGIA
  5. VIOXX [Suspect]
     Indication: OSTEOARTHRITIS
  6. ATENOLOL [Concomitant]
     Indication: HYPERTENSION
     Dates: start: 20000508, end: 20060216
  7. PREMARIN [Concomitant]
     Indication: HORMONE REPLACEMENT THERAPY
     Dates: start: 20000508, end: 20041203

REACTIONS (2)
  - CEREBROVASCULAR ACCIDENT [None]
  - TRANSIENT ISCHAEMIC ATTACK [None]
